FAERS Safety Report 18775642 (Version 2)
Quarter: 2021Q2

REPORT INFORMATION
  Report Type: Spontaneous
  Country: US (occurrence: US)
  Receive Date: 20210122
  Receipt Date: 20210503
  Transmission Date: 20210717
  Serious: No
  Sender: FDA-Public Use
  Company Number: US-PFIZER INC-2020328308

PATIENT
  Age: 59 Year
  Sex: Male

DRUGS (1)
  1. IBRANCE [Suspect]
     Active Substance: PALBOCICLIB
     Indication: BREAST CANCER MALE
     Dosage: 125 MG, CYCLIC (125 MG QD (ONCE A DAY) X21 DAYS Q (EVERY) 28 DAYS/21 DAYS THEN OFF 7 DAYS)
     Dates: start: 20190605

REACTIONS (2)
  - Hot flush [Not Recovered/Not Resolved]
  - Faeces hard [Unknown]
